FAERS Safety Report 9537149 (Version 1)
Quarter: 2013Q3

REPORT INFORMATION
  Report Type: Spontaneous
  Country: US (occurrence: None)
  Receive Date: 20130918
  Receipt Date: 20130918
  Transmission Date: 20140515
  Serious: Yes (Other)
  Sender: FDA-Public Use
  Company Number: None

PATIENT
  Age: 79 Year
  Sex: Female

DRUGS (6)
  1. METOPROLOL TARTRATE [Suspect]
     Indication: BLOOD PRESSURE INCREASED
     Dosage: 1 1/2 PILLS, MORNING AND NIGHT.
     Route: 048
     Dates: start: 20130827
  2. LEVOTHYROXINE 10.50 MG [Concomitant]
  3. BAYER ASPIRIN 81 MG [Concomitant]
  4. AMLODIPINE 5 MG [Concomitant]
  5. CLONAZEPAM 0.5 MG [Concomitant]
  6. CITRUS CALCIUM +D [Concomitant]

REACTIONS (32)
  - Skin discolouration [None]
  - Pain in extremity [None]
  - Pain in extremity [None]
  - Abdominal pain upper [None]
  - Headache [None]
  - Nausea [None]
  - Nasal congestion [None]
  - Rhinorrhoea [None]
  - Hallucination [None]
  - Confusional state [None]
  - Chills [None]
  - Dyspnoea [None]
  - Nasopharyngitis [None]
  - Vision blurred [None]
  - Insomnia [None]
  - Dizziness [None]
  - Diarrhoea [None]
  - Haematochezia [None]
  - Dry mouth [None]
  - Tinnitus [None]
  - Fatigue [None]
  - Oropharyngeal pain [None]
  - Somnolence [None]
  - Asthenia [None]
  - Pruritus [None]
  - Rash [None]
  - Thermal burn [None]
  - Flatulence [None]
  - Thinking abnormal [None]
  - Feeling hot [None]
  - Dysphagia [None]
  - Product substitution issue [None]
